FAERS Safety Report 14008351 (Version 1)
Quarter: 2017Q3

REPORT INFORMATION
  Report Type: Spontaneous
  Country: SG (occurrence: SG)
  Receive Date: 20170925
  Receipt Date: 20170925
  Transmission Date: 20171128
  Serious: No
  Sender: FDA-Public Use
  Company Number: None

PATIENT
  Sex: Female
  Weight: 55 kg

DRUGS (5)
  1. VITAMIN B [Concomitant]
     Active Substance: VITAMIN B
  2. TUSSIDEX FORTE LINCTUS [Concomitant]
  3. CENTRUM [Concomitant]
     Active Substance: VITAMINS
  4. CLARITHROMYCIN 500MG [Suspect]
     Active Substance: CLARITHROMYCIN
     Indication: COUGH
     Dosage: ?          QUANTITY:1 TABLET(S);?
     Route: 048
     Dates: start: 20170925, end: 20170925
  5. 9-TELFAST-D [Concomitant]

REACTIONS (14)
  - Dyspepsia [None]
  - Headache [None]
  - Muscular weakness [None]
  - Dizziness [None]
  - Dyspnoea [None]
  - Syncope [None]
  - Abdominal pain upper [None]
  - Diarrhoea [None]
  - Heart rate increased [None]
  - Fatigue [None]
  - Flatulence [None]
  - Vomiting [None]
  - Dysgeusia [None]
  - Chest pain [None]

NARRATIVE: CASE EVENT DATE: 20170925
